FAERS Safety Report 19698246 (Version 3)
Quarter: 2024Q1

REPORT INFORMATION
  Report Type: Spontaneous
  Country: PT (occurrence: PT)
  Receive Date: 20210812
  Receipt Date: 20240321
  Transmission Date: 20240410
  Serious: Yes (Other)
  Sender: FDA-Public Use
  Company Number: PT-CELLTRION HEALTHCARE HUNGARY KFT-2021PT010339

PATIENT
  Age: 72 Year
  Sex: Male

DRUGS (3)
  1. REMICADE [Suspect]
     Active Substance: INFLIXIMAB
     Indication: Hidradenitis
     Route: 065
     Dates: start: 2016
  2. METHOTREXATE [Suspect]
     Active Substance: METHOTREXATE
     Indication: Hidradenitis
     Route: 065
     Dates: start: 2016
  3. METHOTREXATE [Concomitant]
     Active Substance: METHOTREXATE
     Indication: Hidradenitis

REACTIONS (4)
  - Diffuse large B-cell lymphoma stage IV [Unknown]
  - Sepsis [Unknown]
  - Product use in unapproved indication [Unknown]
  - Off label use [Unknown]

NARRATIVE: CASE EVENT DATE: 20200101
